FAERS Safety Report 9810954 (Version 16)
Quarter: 2015Q2

REPORT INFORMATION
  Report Type: Spontaneous
  Country: US (occurrence: US)
  Receive Date: 20140110
  Receipt Date: 20150514
  Transmission Date: 20150821
  Serious: Yes (Other)
  Sender: FDA-Public Use
  Company Number: US-SANOFI-AVENTIS-2013SA003931

PATIENT
  Age: 54 Year
  Sex: Male
  Weight: 86.63 kg

DRUGS (43)
  1. VASOTEC [Concomitant]
     Active Substance: ENALAPRIL MALEATE
     Route: 048
  2. PRILOSEC [Concomitant]
     Active Substance: OMEPRAZOLE MAGNESIUM
  3. MORPHINE [Concomitant]
     Active Substance: MORPHINE
     Indication: PAIN IN EXTREMITY
     Route: 042
  4. FUROSEMIDE. [Concomitant]
     Active Substance: FUROSEMIDE
     Indication: POLYURIA
  5. LOVASTATIN. [Concomitant]
     Active Substance: LOVASTATIN
     Route: 048
  6. CARAFATE [Concomitant]
     Active Substance: SUCRALFATE
     Dosage: DOSE:100 MILLIGRAM(S)/MILLILITRE
  7. RESTORIL [Concomitant]
     Active Substance: TEMAZEPAM
  8. METOPROLOL [Concomitant]
     Active Substance: METOPROLOL
  9. METOPROLOL [Concomitant]
     Active Substance: METOPROLOL
     Dosage: STRENGTH: 50 MG
     Route: 048
  10. FUROSEMIDE. [Concomitant]
     Active Substance: FUROSEMIDE
     Indication: POLYURIA
     Dosage: DOSE 120
     Route: 048
  11. OMEPRAZOLE. [Concomitant]
     Active Substance: OMEPRAZOLE
     Route: 048
  12. ROBITUSSIN (GUAIFENESIN) [Concomitant]
     Active Substance: GUAIFENESIN
     Indication: COUGH
     Dosage: STRENGTH: 200MG
     Route: 048
  13. PLAVIX [Suspect]
     Active Substance: CLOPIDOGREL BISULFATE
     Route: 048
     Dates: start: 20110226, end: 20111116
  14. METOPROLOL [Concomitant]
     Active Substance: METOPROLOL
     Dosage: DOSE 50
     Route: 048
  15. AMLODIPINE [Concomitant]
     Active Substance: AMLODIPINE BESYLATE
     Dosage: BY MOUTH
     Route: 048
  16. LOSARTAN [Concomitant]
     Active Substance: LOSARTAN
     Route: 048
  17. ALLOPURINOL. [Concomitant]
     Active Substance: ALLOPURINOL
     Route: 048
  18. TORSEMIDE. [Concomitant]
     Active Substance: TORSEMIDE
  19. PHENYTOIN. [Concomitant]
     Active Substance: PHENYTOIN
     Route: 065
  20. HYDRALAZINE [Concomitant]
     Active Substance: HYDRALAZINE HYDROCHLORIDE
     Dosage: STRENGTH: 25 MG
     Route: 048
  21. PROCARDIA [Concomitant]
     Active Substance: NIFEDIPINE
     Dosage: STRENGTH: 90MG
     Route: 048
  22. LOVENOX [Concomitant]
     Active Substance: ENOXAPARIN SODIUM
  23. ASPIRIN. [Suspect]
     Active Substance: ASPIRIN
     Route: 065
  24. JANUVIA [Concomitant]
     Active Substance: SITAGLIPTIN PHOSPHATE
  25. NEURONTIN [Concomitant]
     Active Substance: GABAPENTIN
  26. PROCRIT [Concomitant]
     Active Substance: ERYTHROPOIETIN
     Dosage: 10000UNIT/ML
     Route: 058
  27. LISINOPRIL. [Concomitant]
     Active Substance: LISINOPRIL
  28. ENALAPRIL [Concomitant]
     Active Substance: ENALAPRIL
     Dosage: STRENGTH: 20 MG
     Route: 048
  29. NOVOLOG [Concomitant]
     Active Substance: INSULIN ASPART
     Indication: DIABETES MELLITUS
     Dosage: 100 UNIT/ML
     Route: 058
  30. BACTRIM [Concomitant]
     Active Substance: SULFAMETHOXAZOLE\TRIMETHOPRIM
     Route: 048
  31. LACTULOSE. [Concomitant]
     Active Substance: LACTULOSE
  32. PHENYTOIN SODIUM. [Concomitant]
     Active Substance: PHENYTOIN SODIUM
     Route: 048
  33. AVAPRO [Concomitant]
     Active Substance: IRBESARTAN
  34. GLIPIZIDE. [Concomitant]
     Active Substance: GLIPIZIDE
     Indication: DIABETES MELLITUS
     Dosage: STRENGTH: 10 MG
     Route: 048
  35. LOPRESSOR [Concomitant]
     Active Substance: METOPROLOL TARTRATE
     Route: 048
  36. VIAGRA [Concomitant]
     Active Substance: SILDENAFIL CITRATE
     Indication: ERECTILE DYSFUNCTION
  37. FUROSEMIDE. [Concomitant]
     Active Substance: FUROSEMIDE
     Indication: POLYURIA
     Route: 042
  38. DILANTIN [Concomitant]
     Active Substance: PHENYTOIN
     Route: 048
  39. CALCITRIOL. [Concomitant]
     Active Substance: CALCITRIOL
     Route: 065
  40. SIMVASTATIN. [Concomitant]
     Active Substance: SIMVASTATIN
     Dosage: QPM
     Route: 065
  41. METOLAZONE. [Concomitant]
     Active Substance: METOLAZONE
     Indication: DIABETES MELLITUS
  42. ENALAPRIL [Concomitant]
     Active Substance: ENALAPRIL
     Route: 048
  43. LOVENOX [Concomitant]
     Active Substance: ENOXAPARIN SODIUM
     Route: 058

REACTIONS (3)
  - Anaemia [Unknown]
  - Multiple injuries [Unknown]
  - Haemorrhage [Unknown]

NARRATIVE: CASE EVENT DATE: 201102
